FAERS Safety Report 25228463 (Version 1)
Quarter: 2025Q2

REPORT INFORMATION
  Report Type: Spontaneous
  Country: RU (occurrence: RU)
  Receive Date: 20250423
  Receipt Date: 20250423
  Transmission Date: 20250717
  Serious: Yes (Other)
  Sender: ROCHE
  Company Number: RU-ROCHE-10000258332

PATIENT
  Sex: Female

DRUGS (2)
  1. VEMURAFENIB [Suspect]
     Active Substance: VEMURAFENIB
     Indication: Malignant melanoma
     Route: 065
  2. COBIMETINIB [Suspect]
     Active Substance: COBIMETINIB
     Indication: Malignant melanoma
     Dosage: WITH 7 DAY BREAK
     Route: 065

REACTIONS (17)
  - Asthenia [Unknown]
  - Skin toxicity [Unknown]
  - Haematuria [Unknown]
  - Proteinuria [Unknown]
  - Anaemia [Unknown]
  - Leukocytosis [Unknown]
  - Chronic kidney disease [Unknown]
  - General physical health deterioration [Unknown]
  - Memory impairment [Unknown]
  - Visual impairment [Unknown]
  - Speech disorder [Unknown]
  - Loss of consciousness [Unknown]
  - Amnesia [Unknown]
  - Decreased appetite [Unknown]
  - Weight decreased [Unknown]
  - Diarrhoea [Unknown]
  - Brain oedema [Unknown]
